FAERS Safety Report 16060921 (Version 4)
Quarter: 2022Q3

REPORT INFORMATION
  Report Type: Spontaneous
  Country: DE (occurrence: DE)
  Receive Date: 20190312
  Receipt Date: 20220824
  Transmission Date: 20221027
  Serious: Yes (Death, Other)
  Sender: FDA-Public Use
  Company Number: DE-AUROBINDO-AUR-APL-2019-013443

PATIENT
  Sex: Male

DRUGS (20)
  1. VORICONAZOLE [Suspect]
     Active Substance: VORICONAZOLE
     Indication: Aspergillus infection
     Dosage: 6 MILLIGRAM/KILOGRAM, ONCE A DAY (6 MG/KG/DAY, BID, LOADING DOSE, 12MG/KG EVERY DAY)
     Route: 042
     Dates: start: 201409, end: 201409
  2. VORICONAZOLE [Suspect]
     Active Substance: VORICONAZOLE
     Indication: Antifungal treatment
     Dosage: 4 MILLIGRAM/KILOGRAM, ONCE A DAY (8 MG/KG/DAY, EVERY DAY)
     Route: 042
     Dates: start: 201409, end: 201409
  3. VORICONAZOLE [Suspect]
     Active Substance: VORICONAZOLE
     Dosage: 12 MILLIGRAM/KILOGRAM, ONCE A DAY (6 MG/KG/DAY, BID, LOADING DOSE, 12MG/KG EVERY DAY )
     Route: 042
     Dates: start: 201409, end: 201409
  4. VORICONAZOLE [Suspect]
     Active Substance: VORICONAZOLE
     Dosage: 8 MILLIGRAM, ONCE A DAY
     Route: 042
     Dates: start: 201409
  5. AMPHOTERICIN B [Suspect]
     Active Substance: AMPHOTERICIN B
     Indication: Aspergillus infection
     Dosage: 3 MILLIGRAM/KILOGRAM, ONCE A DAY, 3 MG/KG/DAY SINCE DAY -6
     Route: 042
     Dates: start: 201409, end: 201409
  6. AMPHOTERICIN B [Suspect]
     Active Substance: AMPHOTERICIN B
     Indication: Antifungal treatment
  7. CASPOFUNGIN ACETATE [Suspect]
     Active Substance: CASPOFUNGIN ACETATE
     Indication: Antifungal treatment
     Dosage: 70 MILLIGRAM, ONCE A DAY (70 MG, QD (LOADING DOSE))
     Route: 042
     Dates: start: 201409, end: 201409
  8. CASPOFUNGIN ACETATE [Suspect]
     Active Substance: CASPOFUNGIN ACETATE
     Dosage: 50 MILLIGRAM, ONCE A DAY
     Route: 042
     Dates: start: 201409
  9. CASPOFUNGIN ACETATE [Suspect]
     Active Substance: CASPOFUNGIN ACETATE
     Dosage: 280 MILLIGRAM, ONCE A DAY (70 MG, QID (LOADING DOSE) )
     Route: 042
     Dates: start: 201409, end: 201409
  10. CASPOFUNGIN ACETATE [Suspect]
     Active Substance: CASPOFUNGIN ACETATE
     Dosage: 200 MILLIGRAM, ONCE A DAY
     Route: 042
     Dates: start: 201409
  11. POSACONAZOLE [Suspect]
     Active Substance: POSACONAZOLE
     Indication: Antifungal prophylaxis
     Dosage: 600 MILLIGRAM, ONCE A DAY
     Route: 048
     Dates: start: 201405
  12. THYMOCYTE IMMUNE GLOBULIN NOS [Concomitant]
     Active Substance: THYMOCYTE IMMUNE GLOBULIN NOS
     Indication: Bone marrow conditioning regimen
     Dosage: 10 MILLIGRAM/KILOGRAM (10 MG/KG/DAY, DAYS -5 TO -2)
     Route: 042
     Dates: start: 201409
  13. CYTARABINE [Concomitant]
     Active Substance: CYTARABINE
     Indication: Acute myeloid leukaemia
     Dosage: ONCE A DAY (2000 MG/M2/DAY B.I.D., DAYS 1 AND 5)
     Route: 042
     Dates: start: 201408
  14. CYTARABINE [Concomitant]
     Active Substance: CYTARABINE
     Dosage: 100 MILLIGRAM/SQ. METER, ONCE A DAY (100 MG/M2/DAY, DAYS 1 TO 7)
     Route: 042
     Dates: start: 201405
  15. DECITABINE [Concomitant]
     Active Substance: DECITABINE
     Indication: Acute myeloid leukaemia
     Dosage: 20 MILLIGRAM/SQ. METER, ONCE A DAY (20 MG/M2/DAY, DAYS 1 TO 5)
     Route: 042
     Dates: start: 2014
  16. ETOPOSIDE [Concomitant]
     Active Substance: ETOPOSIDE
     Indication: Acute myeloid leukaemia
     Dosage: 100 MILLIGRAM/SQ. METER, ONCE A DAY (100 MG/M2/DAY, DAYS 3 TO 7)
     Route: 042
     Dates: start: 201405
  17. FLUDARABINE PHOSPHATE [Concomitant]
     Active Substance: FLUDARABINE PHOSPHATE
     Indication: Bone marrow conditioning regimen
     Dosage: 30 MILLIGRAM/SQ. METER, ONCE A DAY ()30 MG/M2/DAY, DAYS -6 TO -2;
     Route: 065
     Dates: start: 201409
  18. IDARUBICIN HYDROCHLORIDE [Concomitant]
     Active Substance: IDARUBICIN HYDROCHLORIDE
     Indication: Acute myeloid leukaemia
     Dosage: 12 MILLIGRAM/SQ. METER, ONCE A DAY (12 MG/M2/DAY, DAYS 2, 4 AND 6)
     Route: 042
     Dates: start: 201405
  19. MELPHALAN [Concomitant]
     Active Substance: MELPHALAN
     Indication: Bone marrow conditioning regimen
     Dosage: 150 MILLIGRAM/SQ. METER (150 MG/M2, ON DAY -2)
     Route: 042
     Dates: start: 201409
  20. MITOXANTRONE HYDROCHLORIDE [Concomitant]
     Active Substance: MITOXANTRONE HYDROCHLORIDE
     Indication: Acute myeloid leukaemia
     Dosage: 30 MILLIGRAM/SQ. METER, ONCE A DAY (30 MG/M2/DAY, DAYS 1 AND 5)
     Route: 042
     Dates: start: 201408

REACTIONS (5)
  - Aspergillus infection [Fatal]
  - Bronchopulmonary aspergillosis [Fatal]
  - Cerebral aspergillosis [Fatal]
  - Drug ineffective [Fatal]
  - Drug resistance [Unknown]

NARRATIVE: CASE EVENT DATE: 20140801
